FAERS Safety Report 18095218 (Version 2)
Quarter: 2020Q3

REPORT INFORMATION
  Report Type: Report from Study
  Country: FR (occurrence: FR)
  Receive Date: 20200730
  Receipt Date: 20200909
  Transmission Date: 20201103
  Serious: Yes (Other)
  Sender: FDA-Public Use
  Company Number: FR-JNJFOC-20200732012

PATIENT
  Age: 41 Year
  Sex: Male
  Weight: 98 kg

DRUGS (22)
  1. STELARA [Suspect]
     Active Substance: USTEKINUMAB
     Route: 058
     Dates: start: 20151005, end: 20160405
  2. SEBIPROX [Concomitant]
     Active Substance: CICLOPIROX OLAMINE
     Dates: start: 20160321
  3. MYCOSTER                           /00619301/ [Concomitant]
     Active Substance: CICLOPIROX\CICLOPIROX OLAMINE
     Indication: PRODUCT USED FOR UNKNOWN INDICATION
     Dates: start: 20141017
  4. SEBIPROX [Concomitant]
     Active Substance: CICLOPIROX OLAMINE
     Dates: start: 20151005
  5. CLARELUX [Concomitant]
     Active Substance: CLOBETASOL PROPIONATE
     Dates: start: 20160321
  6. DEXERYL                            /01579901/ [Concomitant]
     Active Substance: GLYCERIN\MINERAL OIL\PETROLATUM
     Dates: start: 20200608
  7. STELARA [Suspect]
     Active Substance: USTEKINUMAB
     Indication: PSORIASIS
     Dosage: CYCLIC (EVERY 4 WEEKS)
     Route: 058
     Dates: start: 20150117, end: 20150216
  8. STELARA [Suspect]
     Active Substance: USTEKINUMAB
     Route: 058
     Dates: start: 20160405, end: 20200608
  9. STELARA [Suspect]
     Active Substance: USTEKINUMAB
     Route: 058
     Dates: start: 20150216, end: 20151005
  10. HUMIRA [Suspect]
     Active Substance: ADALIMUMAB
     Indication: PRODUCT USED FOR UNKNOWN INDICATION
     Dates: start: 201407, end: 20141226
  11. SEBIPROX [Concomitant]
     Active Substance: CICLOPIROX OLAMINE
     Dates: start: 20180514
  12. SILKIS [Concomitant]
     Active Substance: CALCITRIOL
  13. METHOTREXATE. [Suspect]
     Active Substance: METHOTREXATE
     Indication: PRODUCT USED FOR UNKNOWN INDICATION
  14. DAIVOBET [Concomitant]
     Active Substance: BETAMETHASONE DIPROPIONATE\CALCIPOTRIENE
     Dates: start: 20161128
  15. ERYTHROCINE                        /00020901/ [Concomitant]
     Active Substance: ERYTHROMYCIN
     Dates: start: 20181119
  16. ERYTHROCINE                        /00020901/ [Concomitant]
     Active Substance: ERYTHROMYCIN
     Dates: start: 20200608
  17. LITHIODERM [Concomitant]
     Active Substance: LITHIUM GLUCONATE
     Dates: start: 20161128
  18. DEXERYL                            /01579901/ [Concomitant]
     Active Substance: GLYCERIN\MINERAL OIL\PETROLATUM
     Dates: start: 20160321
  19. DEXERYL                            /01579901/ [Concomitant]
     Active Substance: GLYCERIN\MINERAL OIL\PETROLATUM
     Dates: start: 20180514
  20. DAIVOBET [Concomitant]
     Active Substance: BETAMETHASONE DIPROPIONATE\CALCIPOTRIENE
     Dates: start: 20180514
  21. MYCOSTER                           /00619301/ [Concomitant]
     Active Substance: CICLOPIROX\CICLOPIROX OLAMINE
     Dates: start: 20180514
  22. XAMIOL                             /06356901/ [Concomitant]
     Active Substance: BETAMETHASONE DIPROPIONATE\CALCIPOTRIENE
     Dates: start: 20190527

REACTIONS (1)
  - COVID-19 [Recovered/Resolved]

NARRATIVE: CASE EVENT DATE: 20200330
